FAERS Safety Report 24409281 (Version 1)
Quarter: 2024Q4

REPORT INFORMATION
  Report Type: Report from Study
  Country: CO (occurrence: CO)
  Receive Date: 20241008
  Receipt Date: 20241008
  Transmission Date: 20250115
  Serious: Yes (Hospitalization)
  Sender: UCB
  Company Number: CO-UCBSA-2024051309

PATIENT
  Age: 42 Year
  Sex: Male

DRUGS (3)
  1. CERTOLIZUMAB PEGOL [Suspect]
     Active Substance: CERTOLIZUMAB PEGOL
     Indication: Ankylosing spondylitis
     Dosage: 400 MILLIGRAM, EV 4 WEEKS
     Route: 058
     Dates: start: 20210506, end: 20240715
  2. DOLEX [PARACETAMOL] [Concomitant]
     Indication: Product used for unknown indication
     Dosage: UNK
  3. NAPROXEN [Concomitant]
     Active Substance: NAPROXEN
     Indication: Product used for unknown indication
     Dosage: UNK

REACTIONS (4)
  - Dengue fever [Not Recovered/Not Resolved]
  - Insurance issue [Unknown]
  - Off label use [Unknown]
  - Therapy interrupted [Unknown]

NARRATIVE: CASE EVENT DATE: 20210506
